FAERS Safety Report 9897651 (Version 1)
Quarter: 2014Q1

REPORT INFORMATION
  Report Type: Spontaneous
  Country: PT (occurrence: PT)
  Receive Date: 20140214
  Receipt Date: 20140214
  Transmission Date: 20141002
  Serious: Yes (Other)
  Sender: FDA-Public Use
  Company Number: PT-BEH-2014040542

PATIENT
  Age: 10 Year
  Sex: Male

DRUGS (1)
  1. IVIG [Suspect]
     Indication: BRUTON^S AGAMMAGLOBULINAEMIA
     Route: 042

REACTIONS (6)
  - Glomerulonephritis membranoproliferative [Recovering/Resolving]
  - Pneumonia [Unknown]
  - Haematuria [Recovering/Resolving]
  - Proteinuria [Recovering/Resolving]
  - Hypercholesterolaemia [Unknown]
  - Hypoalbuminaemia [Unknown]
